FAERS Safety Report 7663081-8 (Version None)
Quarter: 2011Q3

REPORT INFORMATION
  Report Type: 
  Country: None (occurrence: None)
  Receive Date: 20110805
  Receipt Date: 20110708
  Transmission Date: 20111222
  Serious: Yes (Other)
  Sender: FDA-Public Use
  Company Number: PHHY2011PL65356

PATIENT
  Age: 57 Year
  Sex: Female

DRUGS (4)
  1. CORTICOSTEROIDS [Concomitant]
     Dosage: UNK UKN, UNK
     Route: 065
  2. IMATINIB MESYLATE [Suspect]
     Dosage: 300 MG, QD
     Route: 048
  3. IMATINIB MESYLATE [Suspect]
     Indication: GASTROINTESTINAL STROMAL TUMOUR
     Dosage: 400 MG, QD
     Route: 048
     Dates: start: 20100601
  4. ANTIHISTAMINES [Concomitant]
     Dosage: UNK UKN, UNK
     Route: 065

REACTIONS (4)
  - SKIN LESION [None]
  - SKIN HYPERPIGMENTATION [None]
  - DRUG ERUPTION [None]
  - PRURITUS [None]
